FAERS Safety Report 8070716 (Version 5)
Quarter: 2014Q1

REPORT INFORMATION
  Report Type: Spontaneous
  Country: US (occurrence: US)
  Receive Date: 20110805
  Receipt Date: 20140328
  Transmission Date: 20141002
  Serious: Yes (Death, Hospitalization)
  Sender: FDA-Public Use
  Company Number: US-B.I. PHARMACEUTICALS,INC./RIDGEFIELD-2011-BP-18988BP

PATIENT
  Age: 81 Year
  Sex: Female
  Weight: 80.4 kg

DRUGS (6)
  1. PRADAXA [Suspect]
     Indication: ATRIAL FIBRILLATION
     Dosage: 300 MG
     Route: 048
     Dates: start: 20110520, end: 20110628
  2. ARICEPT [Concomitant]
     Dosage: 50 MG
     Route: 065
  3. DEPAKOTE CR [Concomitant]
     Route: 065
  4. DIGOXIN [Concomitant]
     Route: 065
  5. K-CHLOR [Concomitant]
     Route: 065
  6. FENANTYL PATCH [Concomitant]
     Route: 065

REACTIONS (4)
  - Cardiac failure congestive [Fatal]
  - Anaemia [Unknown]
  - Gastrointestinal haemorrhage [Recovered/Resolved]
  - Gastric ulcer [Unknown]
